FAERS Safety Report 5229657-2 (Version None)
Quarter: 2007Q1

REPORT INFORMATION
  Report Type: 
  Country: None (occurrence: None)
  Receive Date: 20070206
  Receipt Date: 20070129
  Transmission Date: 20070707
  Serious: Yes (Other)
  Sender: FDA-Public Use
  Company Number: HQWYE101309AUG04

PATIENT
  Sex: Female
  Weight: 69.01 kg

DRUGS (3)
  1. PREMPRO [Suspect]
  2. PROVERA [Suspect]
  3. PREMARIN [Suspect]

REACTIONS (6)
  - BREAST CANCER METASTATIC [None]
  - BREAST MICROCALCIFICATION [None]
  - FIBROCYSTIC BREAST DISEASE [None]
  - METASTASES TO LYMPH NODES [None]
  - RENAL CYST [None]
  - SPINAL OSTEOARTHRITIS [None]
